FAERS Safety Report 21563954 (Version 4)
Quarter: 2023Q2

REPORT INFORMATION
  Report Type: Report from Study
  Country: US (occurrence: None)
  Receive Date: 20221108
  Receipt Date: 20230627
  Transmission Date: 20230721
  Serious: Yes (Death, Hospitalization)
  Sender: FDA-Public Use
  Company Number: US-ROCHE-3210298

PATIENT
  Age: 44 Year
  Sex: Female

DRUGS (6)
  1. ATEZOLIZUMAB [Suspect]
     Active Substance: ATEZOLIZUMAB
     Indication: Neoplasm malignant
     Dosage: LAST DOSE OF STUDY DRUGS PRIOR TO SAE 22/OCT/2022
     Route: 041
     Dates: start: 20221013
  2. BUPARLISIB [Suspect]
     Active Substance: BUPARLISIB
     Indication: Neoplasm malignant
     Dosage: LAST DOSE OF STUDY DRUGS PRIOR TO SAE 22/OCT/2022
     Route: 048
     Dates: start: 20221013
  3. ASCORBIC ACID [Concomitant]
     Active Substance: ASCORBIC ACID
     Route: 048
     Dates: start: 202209
  4. CALCIUM CARBONATE\CHOLECALCIFEROL [Concomitant]
     Active Substance: CALCIUM CARBONATE\CHOLECALCIFEROL
     Route: 048
     Dates: start: 202209
  5. GABAPENTIN [Concomitant]
     Active Substance: GABAPENTIN
     Dates: start: 20220911
  6. NITROFURANTOIN [Concomitant]
     Active Substance: NITROFURANTOIN
     Dates: start: 20220911

REACTIONS (4)
  - Rash maculo-papular [Recovering/Resolving]
  - Sepsis [Fatal]
  - Mucosal inflammation [Unknown]
  - Stomatitis [Unknown]

NARRATIVE: CASE EVENT DATE: 20221023
